FAERS Safety Report 25473948 (Version 2)
Quarter: 2025Q3

REPORT INFORMATION
  Report Type: Other
  Country: US (occurrence: US)
  Receive Date: 20250624
  Receipt Date: 20250821
  Transmission Date: 20251020
  Serious: Yes (Other)
  Sender: TRAVERE THERAPEUTICS
  Company Number: US-TRAVERE-2025TVT00985

PATIENT
  Age: 53 Year
  Sex: Female

DRUGS (1)
  1. FILSPARI [Suspect]
     Active Substance: SPARSENTAN
     Indication: IgA nephropathy
     Route: 048
     Dates: start: 20241203, end: 20250812

REACTIONS (5)
  - Heart rate decreased [Unknown]
  - Glomerular filtration rate decreased [Unknown]
  - Anaemia [Recovered/Resolved]
  - Blood creatinine increased [Unknown]
  - Fatigue [Unknown]
